FAERS Safety Report 5879894-9 (Version None)
Quarter: 2008Q3

REPORT INFORMATION
  Report Type: 
  Country: None (occurrence: None)
  Receive Date: 20080912
  Receipt Date: 20080909
  Transmission Date: 20090109
  Serious: Yes (Hospitalization)
  Sender: FDA-Public Use
  Company Number: GR-ABBOTT-08P-066-0465215-00

PATIENT
  Age: 51 Year
  Sex: Female

DRUGS (5)
  1. HUMIRA [Suspect]
     Indication: RHEUMATOID ARTHRITIS
     Route: 058
     Dates: start: 20061218, end: 20080704
  2. LEFLUNOMIDE [Concomitant]
     Indication: RHEUMATOID ARTHRITIS
     Route: 048
     Dates: start: 20061218, end: 20080704
  3. THYRORMONE [Concomitant]
     Indication: HYPOTHYROIDISM
     Route: 048
  4. SUMATRIPTAN SUCCINATE [Concomitant]
     Indication: MIGRAINE
     Route: 048
  5. MAXALP [Concomitant]
     Indication: MIGRAINE
     Dosage: SUPRALINGUAL

REACTIONS (3)
  - ENDOMETRIAL CANCER [None]
  - THROMBOCYTOPENIA [None]
  - VAGINAL DISCHARGE [None]
